FAERS Safety Report 23602533 (Version 1)
Quarter: 2024Q1

REPORT INFORMATION
  Report Type: Spontaneous
  Country: IT (occurrence: IT)
  Receive Date: 20240306
  Receipt Date: 20240306
  Transmission Date: 20240410
  Serious: Yes (Other)
  Sender: FDA-Public Use
  Company Number: None

PATIENT
  Age: 72 Year
  Sex: Female

DRUGS (2)
  1. DOXORUBICIN [Suspect]
     Active Substance: DOXORUBICIN
     Indication: Breast cancer
     Dosage: START OF THERAPY 10/12/2023 - THERAPY EVERY 14 DAYS - II CYCLE (ADR THROMBOCYTOPENIA)?III CYCLE O...
     Route: 042
     Dates: start: 20231012, end: 20231026
  2. CYCLOPHOSPHAMIDE [Suspect]
     Active Substance: CYCLOPHOSPHAMIDE
     Indication: Breast cancer
     Dosage: START OF THERAPY 10/12/2023 - THERAPY EVERY 14 DAYS - II CYCLE?ENDOXAN BAXTER
     Route: 042
     Dates: start: 20231012, end: 20231026

REACTIONS (2)
  - Thrombocytopenia [Recovering/Resolving]
  - Sacral pain [Recovered/Resolved]

NARRATIVE: CASE EVENT DATE: 20231026
